FAERS Safety Report 19364757 (Version 5)
Quarter: 2021Q3

REPORT INFORMATION
  Report Type: Spontaneous
  Country: JP (occurrence: JP)
  Receive Date: 20210602
  Receipt Date: 20210831
  Transmission Date: 20211014
  Serious: Yes (Death, Other)
  Sender: FDA-Public Use
  Company Number: JP-AMERICAN REGENT INC-2021001404

PATIENT
  Age: 89 Year
  Sex: Female

DRUGS (14)
  1. FERINJECT [Suspect]
     Active Substance: FERRIC CARBOXYMALTOSE
     Dosage: 500 MG
     Dates: start: 20210402, end: 20210402
  2. FERINJECT [Suspect]
     Active Substance: FERRIC CARBOXYMALTOSE
     Dosage: 500 MG
     Dates: start: 20210403, end: 20210403
  3. LEVOTHYROXINE NA [Concomitant]
     Active Substance: LEVOTHYROXINE SODIUM
     Indication: AUTOIMMUNE THYROIDITIS
     Dosage: 50 MCG, 1 IN 1 D
     Route: 048
     Dates: end: 20210412
  4. ZOPICLONE [Concomitant]
     Active Substance: ZOPICLONE
     Indication: AUTOIMMUNE THYROIDITIS
     Dosage: 7.5 MG, 1 IN 1 D
     Route: 048
     Dates: end: 20210412
  5. FERINJECT [Suspect]
     Active Substance: FERRIC CARBOXYMALTOSE
     Dosage: 500 MG
     Dates: start: 20210405, end: 20210405
  6. CORTRIL [Concomitant]
     Active Substance: HYDROCORTISONE
     Indication: AUTOIMMUNE THYROIDITIS
     Dosage: 5 MG, 1 IN 1 D
     Route: 048
     Dates: end: 20210412
  7. REMINYL [Concomitant]
     Active Substance: GALANTAMINE
     Indication: DEMENTIA
     Dosage: 8 MG, 1 IN 1 D
     Route: 048
     Dates: end: 20210412
  8. FAMOTIDINE. [Concomitant]
     Active Substance: FAMOTIDINE
     Indication: AUTOIMMUNE THYROIDITIS
     Dosage: 20 MG, 1 IN 1 D
     Route: 048
     Dates: end: 20210412
  9. FERINJECT [Suspect]
     Active Substance: FERRIC CARBOXYMALTOSE
     Indication: IRON DEFICIENCY ANAEMIA
     Dosage: 500 MG
     Dates: start: 20210329, end: 20210329
  10. THYRADIN?S [Concomitant]
     Active Substance: LEVOTHYROXINE
     Indication: AUTOIMMUNE THYROIDITIS
     Dosage: UNK
     Route: 048
     Dates: end: 20210412
  11. NU?LOTAN [Concomitant]
     Active Substance: LOSARTAN POTASSIUM
     Indication: AUTOIMMUNE THYROIDITIS
     Dosage: 25 MG, 1 IN 1 D
     Route: 048
     Dates: end: 20210412
  12. SPIRONOLACTONE. [Concomitant]
     Active Substance: SPIRONOLACTONE
     Indication: AUTOIMMUNE THYROIDITIS
     Dosage: 25 MG, 1 IN 1 D
     Route: 048
     Dates: end: 20210412
  13. FERINJECT [Suspect]
     Active Substance: FERRIC CARBOXYMALTOSE
     Dosage: 500 MG
     Dates: start: 20210404, end: 20210404
  14. FERINJECT [Suspect]
     Active Substance: FERRIC CARBOXYMALTOSE
     Dosage: 500 MG
     Dates: start: 20210401, end: 20210401

REACTIONS (14)
  - Iron overload [Not Recovered/Not Resolved]
  - Hepatic failure [Fatal]
  - Haematemesis [Unknown]
  - Jaundice [Unknown]
  - Hyperammonaemia [Unknown]
  - Depressed level of consciousness [Not Recovered/Not Resolved]
  - Haemochromatosis [Unknown]
  - Hepatic encephalopathy [Unknown]
  - Cardiopulmonary failure [Unknown]
  - Disseminated intravascular coagulation [Unknown]
  - Inflammation [Unknown]
  - Overdose [Unknown]
  - General physical health deterioration [Unknown]
  - Oedema [Unknown]

NARRATIVE: CASE EVENT DATE: 20210405
